FAERS Safety Report 8565241-0 (Version None)
Quarter: 2012Q3

REPORT INFORMATION
  Report Type: 
  Country: None (occurrence: None)
  Receive Date: 20120803
  Receipt Date: 20120723
  Transmission Date: 20120928
  Serious: Yes (Hospitalization)
  Sender: FDA-Public Use
  Company Number: FR-VIIV HEALTHCARE LIMITED-B0816389A

PATIENT
  Sex: Female

DRUGS (6)
  1. VIRAMUNE [Concomitant]
     Indication: HIV INFECTION
     Route: 065
  2. RETROVIR [Suspect]
     Indication: HIV INFECTION
     Dosage: 15ML TWICE PER DAY
     Route: 048
     Dates: end: 20120524
  3. DEPAKENE [Suspect]
     Indication: ENCEPHALOPATHY
     Dosage: 100MG PER DAY
     Route: 048
     Dates: end: 20120527
  4. BACTRIM [Suspect]
     Indication: PROPHYLAXIS
     Dosage: 5ML PER DAY
     Route: 048
     Dates: end: 20120524
  5. EPIVIR [Concomitant]
     Indication: HIV INFECTION
     Route: 065
  6. URSOLVAN [Concomitant]
     Indication: CHOLELITHIASIS MIGRATION
     Route: 065
     Dates: start: 20120301

REACTIONS (4)
  - PYREXIA [None]
  - CONJUNCTIVAL PALLOR [None]
  - APLASIA PURE RED CELL [None]
  - ANAEMIA [None]
